FAERS Safety Report 7053139-9 (Version None)
Quarter: 2010Q4

REPORT INFORMATION
  Report Type: 
  Country: None (occurrence: None)
  Receive Date: 20101020
  Receipt Date: 20101012
  Transmission Date: 20110411
  Serious: Yes (Other)
  Sender: FDA-Public Use
  Company Number: US-JNJFOC-20100606822

PATIENT
  Sex: Female
  Weight: 46.72 kg

DRUGS (9)
  1. DURAGESIC-100 [Suspect]
     Indication: PAIN
     Route: 062
  2. DURAGESIC-100 [Suspect]
     Route: 062
  3. PANTOPRAZOLE [Concomitant]
     Indication: ULCER
     Route: 048
  4. ZANTAC [Concomitant]
     Indication: ULCER
     Route: 048
  5. DIFLUNISAL [Concomitant]
     Indication: ARTHRITIS
     Route: 048
  6. CARAFATE [Concomitant]
     Indication: ULCER
     Route: 048
  7. AMBIEN [Concomitant]
     Indication: SLEEP DISORDER
     Route: 048
  8. HYDROCODONE [Concomitant]
     Indication: PAIN
     Route: 048
  9. FLEXERIL [Concomitant]
     Indication: PAIN
     Route: 048

REACTIONS (8)
  - DEPRESSION [None]
  - DRUG INEFFECTIVE [None]
  - DYSPNOEA [None]
  - FATIGUE [None]
  - LUNG INFECTION [None]
  - NASOPHARYNGITIS [None]
  - PRODUCT QUALITY ISSUE [None]
  - WITHDRAWAL SYNDROME [None]
